FAERS Safety Report 14380815 (Version 3)
Quarter: 2018Q1

REPORT INFORMATION
  Report Type: Report from Study
  Country: BE (occurrence: BE)
  Receive Date: 20180112
  Receipt Date: 20180328
  Transmission Date: 20180509
  Serious: Yes (Hospitalization, Other)
  Sender: FDA-Public Use
  Company Number: BE-PFIZER INC-2018010475

PATIENT
  Age: 71 Year
  Sex: Male
  Weight: 81.7 kg

DRUGS (7)
  1. PREDNISOLONE. [Suspect]
     Active Substance: PREDNISOLONE
     Dosage: 10 MG, 1X/DAY (10 MG QD)
     Route: 048
     Dates: start: 20150417
  2. CELLCEPT [Suspect]
     Active Substance: MYCOPHENOLATE MOFETIL\MYCOPHENOLATE MOFETIL HYDROCHLORIDE
     Indication: RENAL TRANSPLANT
     Dosage: 750 MG, UNK
  3. TACROLIMUS. [Suspect]
     Active Substance: TACROLIMUS
     Indication: RENAL TRANSPLANT
     Dosage: 6 MG, UNK
  4. PROGRAFT [Suspect]
     Active Substance: TACROLIMUS
     Indication: RENAL TRANSPLANT
     Dosage: 6 MG, UNK
     Route: 048
  5. EUSAPRIM /01680801/ [Concomitant]
     Indication: ANTIFUNGAL PROPHYLAXIS
     Dosage: 480 MG
     Route: 048
  6. VALCYTE [Concomitant]
     Active Substance: VALGANCICLOVIR HYDROCHLORIDE
     Indication: ANTIVIRAL PROPHYLAXIS
     Dosage: 450 MG, BID
     Route: 048
     Dates: start: 20150416
  7. MEDROL [Suspect]
     Active Substance: METHYLPREDNISOLONE
     Dosage: 10 MG, 1X/DAY (10 MG QD)
     Route: 048
     Dates: start: 20150417

REACTIONS (7)
  - Prostatitis [Recovered/Resolved]
  - Escherichia infection [Recovered/Resolved]
  - Pyuria [Recovered/Resolved]
  - Urosepsis [Recovered/Resolved]
  - Escherichia urinary tract infection [Recovered/Resolved]
  - Pyrexia [Recovered/Resolved]
  - Perirenal haematoma [Recovered/Resolved]

NARRATIVE: CASE EVENT DATE: 20150419
